FAERS Safety Report 17812843 (Version 1)
Quarter: 2020Q2

REPORT INFORMATION
  Report Type: Spontaneous
  Country: US (occurrence: US)
  Receive Date: 20200521
  Receipt Date: 20200521
  Transmission Date: 20200714
  Serious: No
  Sender: FDA-Public Use
  Company Number: None

PATIENT
  Age: 79 Year
  Sex: Female
  Weight: 63.9 kg

DRUGS (8)
  1. VITAMIN D [Concomitant]
     Active Substance: VITAMIN D NOS
  2. LOTEPREDNOL ETABONATE [Suspect]
     Active Substance: LOTEPREDNOL ETABONATE
     Indication: BLEPHARITIS
     Dosage: ?          QUANTITY:1 DROP(S);?
     Route: 047
  3. SPIRONOLACTONE. [Concomitant]
     Active Substance: SPIRONOLACTONE
  4. BIOTIN [Concomitant]
     Active Substance: BIOTIN
  5. TURMERIC [Concomitant]
     Active Substance: HERBALS\TURMERIC
  6. BLACK PEPPER. [Concomitant]
     Active Substance: BLACK PEPPER
  7. AMLODIPINE [Concomitant]
     Active Substance: AMLODIPINE BESYLATE
  8. LUTEIN [Concomitant]
     Active Substance: LUTEIN

REACTIONS (5)
  - Vertigo [None]
  - Fall [None]
  - Nausea [None]
  - Vomiting [None]
  - Balance disorder [None]

NARRATIVE: CASE EVENT DATE: 20200521
